FAERS Safety Report 7609483-7 (Version None)
Quarter: 2011Q3

REPORT INFORMATION
  Report Type: 
  Country: None (occurrence: None)
  Receive Date: 20110713
  Receipt Date: 20110713
  Transmission Date: 20111222
  Serious: Yes (Hospitalization)
  Sender: FDA-Public Use
  Company Number: None

PATIENT
  Age: 53 Year
  Sex: Male
  Weight: 105 kg

DRUGS (1)
  1. TAMIFLU [Suspect]
     Indication: PNEUMONIA INFLUENZAL
     Dosage: 150MG Q12H PO
     Route: 048
     Dates: start: 20110311, end: 20110321

REACTIONS (1)
  - COLITIS [None]
